FAERS Safety Report 22200914 (Version 1)
Quarter: 2023Q2

REPORT INFORMATION
  Report Type: Spontaneous
  Country: IT (occurrence: IT)
  Receive Date: 20230412
  Receipt Date: 20230412
  Transmission Date: 20230722
  Serious: Yes (Life-Threatening, Other)
  Sender: FDA-Public Use
  Company Number: IT-MLMSERVICE-20230223-4123325-1

PATIENT
  Age: 6 Decade
  Sex: Female
  Weight: 72 kg

DRUGS (35)
  1. MELPHALAN [Suspect]
     Active Substance: MELPHALAN
     Indication: Bone marrow conditioning regimen
     Dosage: 140 MILLIGRAM/SQ. METER, CYCLICAL (140 MG/M2 DAY -2, ROUTE IV)
     Route: 042
     Dates: start: 2020
  2. MELPHALAN [Suspect]
     Active Substance: MELPHALAN
     Indication: Diffuse large B-cell lymphoma
  3. MELPHALAN [Suspect]
     Active Substance: MELPHALAN
     Indication: Diffuse large B-cell lymphoma stage IV
  4. ADRIAMYCIN [Suspect]
     Active Substance: DOXORUBICIN HYDROCHLORIDE
     Indication: Diffuse large B-cell lymphoma stage IV
     Dosage: 50 MILLIGRAM/SQ. METER, CYCLICAL  (FOUR CYCLES, DOXORUBICIN 50 MG/M2 DAY 1 VIA ROUTE IV EVERY 14 DAY
     Route: 042
     Dates: start: 2019
  5. ADRIAMYCIN [Suspect]
     Active Substance: DOXORUBICIN HYDROCHLORIDE
     Indication: Diffuse large B-cell lymphoma
  6. CISPLATIN [Suspect]
     Active Substance: CISPLATIN
     Indication: Diffuse large B-cell lymphoma recurrent
     Dosage: 100 MILLIGRAM/SQ. METER, CYCLICAL (TWO BRIDGING COURSES, 25 MG/M2, DAYS 1-4, ROUTE IV)
     Route: 042
  7. CISPLATIN [Suspect]
     Active Substance: CISPLATIN
     Indication: Diffuse large B-cell lymphoma
  8. CISPLATIN [Suspect]
     Active Substance: CISPLATIN
     Indication: Diffuse large B-cell lymphoma stage IV
  9. CYCLOPHOSPHAMIDE [Suspect]
     Active Substance: CYCLOPHOSPHAMIDE
     Indication: Diffuse large B-cell lymphoma
     Dosage: 750 MILLIGRAM/SQ. METER, CYCLICAL  (FOUR CYCLES, 750 MG/M2 DAY 1 VIA ROUTE IV EVERY 14 DAYS)
     Route: 042
     Dates: start: 2019
  10. CYCLOPHOSPHAMIDE [Suspect]
     Active Substance: CYCLOPHOSPHAMIDE
     Indication: Diffuse large B-cell lymphoma stage IV
  11. CYTARABINE [Suspect]
     Active Substance: CYTARABINE
     Indication: Diffuse large B-cell lymphoma recurrent
     Dosage: 2000 MILLIGRAM/SQ. METER, CYCLICAL (TWO BRIDGING COURSES, 2000 MG/M2, DAY 5, ROUTE IV)
     Route: 042
  12. CYTARABINE [Suspect]
     Active Substance: CYTARABINE
     Indication: Diffuse large B-cell lymphoma
     Dosage: 1600 MILLIGRAM/SQ. METER, CYCLICAL (200 MG/M2/12 H DAYS -6,-5,-4,-3 ROUTE IV)
     Route: 042
     Dates: start: 2020
  13. CYTARABINE [Suspect]
     Active Substance: CYTARABINE
     Indication: Diffuse large B-cell lymphoma stage IV
     Dosage: UNK (ONE COURSE OF HIGH DOSE CYTARABINE)
     Route: 065
     Dates: start: 2020
  14. CYTARABINE [Suspect]
     Active Substance: CYTARABINE
     Indication: Bone marrow conditioning regimen
     Dosage: 12000 MILLIGRAM/SQ. METER, CYCLICAL (ONE COURSE OF CONSOLIDATION CHEMOTHERAPY, 2000 MG/M2/12 H, DAYS
     Route: 042
  15. DEXAMETHASONE [Suspect]
     Active Substance: DEXAMETHASONE
     Indication: Diffuse large B-cell lymphoma stage IV
     Dosage: 24 MILLIGRAM/SQ. METER, CYCLICAL (ONE COURSE OF CONSOLIDATION CHEMOTHERAPY, 4 MG/M2/12 H, DAYS 1-3,
     Route: 042
  16. DEXAMETHASONE [Suspect]
     Active Substance: DEXAMETHASONE
     Indication: Diffuse large B-cell lymphoma
  17. ETOPOSIDE [Suspect]
     Active Substance: ETOPOSIDE
     Indication: Diffuse large B-cell lymphoma stage IV
     Dosage: 800 MILLIGRAM/SQ. METER, CYCLICAL (100 MG/M2/12 H DAYS -6,-5,-4,-3, ROUTE IV)
     Route: 042
     Dates: start: 2020
  18. ETOPOSIDE [Suspect]
     Active Substance: ETOPOSIDE
     Indication: Bone marrow conditioning regimen
     Dosage: 160 MILLIGRAM/SQ. METER, CYCLICAL (TWO BRIDGING COURSES, 40 MG/M2, DAYS 1-4, ROUTE IV)
     Route: 042
  19. ETOPOSIDE [Suspect]
     Active Substance: ETOPOSIDE
     Indication: Diffuse large B-cell lymphoma
  20. ETOPOSIDE [Suspect]
     Active Substance: ETOPOSIDE
     Indication: Diffuse large B-cell lymphoma recurrent
  21. FOTEMUSTINE [Suspect]
     Active Substance: FOTEMUSTINE
     Indication: Bone marrow conditioning regimen
     Dosage: 300 MILLIGRAM/SQ. METER, CYCLICAL (300 MG/M2 DAY-7, ROUTE IV)
     Route: 042
     Dates: start: 2020
  22. FOTEMUSTINE [Suspect]
     Active Substance: FOTEMUSTINE
     Indication: Diffuse large B-cell lymphoma stage IV
  23. FOTEMUSTINE [Suspect]
     Active Substance: FOTEMUSTINE
     Indication: Diffuse large B-cell lymphoma
  24. METHYLPREDNISOLONE [Suspect]
     Active Substance: METHYLPREDNISOLONE
     Indication: Diffuse large B-cell lymphoma
     Dosage: 2500 MILLIGRAM, CYCLICAL (TWO BRIDGING COURSES, 500 MG, DAYS 1-5, ROUTE IV)
     Route: 042
  25. METHYLPREDNISOLONE [Suspect]
     Active Substance: METHYLPREDNISOLONE
     Indication: Diffuse large B-cell lymphoma recurrent
  26. METHYLPREDNISOLONE [Suspect]
     Active Substance: METHYLPREDNISOLONE
     Indication: Diffuse large B-cell lymphoma stage IV
  27. MITOXANTRONE [Suspect]
     Active Substance: MITOXANTRONE HYDROCHLORIDE
     Indication: Diffuse large B-cell lymphoma
     Dosage: 24 MILLIGRAM/SQ. METER, CYCLICAL  (ONE COURSE OF CONSOLIDATION CHEMOTHERAPY, 8 MG/M2/DIE, DAYS 1-3,
     Route: 042
  28. MITOXANTRONE [Suspect]
     Active Substance: MITOXANTRONE HYDROCHLORIDE
     Indication: Diffuse large B-cell lymphoma stage IV
  29. PREDNISOLONE [Suspect]
     Active Substance: PREDNISOLONE
     Indication: Diffuse large B-cell lymphoma
     Dosage: 500 MILLIGRAM, CYCLICAL (FOUR CYCLES, 100 MG DAYS 1-5 VIA ROUTE ORAL EVERY 14 DAYS)
     Route: 048
     Dates: start: 2019
  30. PREDNISOLONE [Suspect]
     Active Substance: PREDNISOLONE
     Indication: Diffuse large B-cell lymphoma stage IV
  31. RITUXIMAB [Suspect]
     Active Substance: RITUXIMAB
     Indication: Diffuse large B-cell lymphoma recurrent
     Dosage: 375 MILLIGRAM/SQ. METER, CYCLICAL (TWO BRIDGING COURSES, 375 MG/M2, DAY 0, ROUTE IV)
     Route: 042
  32. RITUXIMAB [Suspect]
     Active Substance: RITUXIMAB
     Indication: Diffuse large B-cell lymphoma
     Dosage: 375 MILLIGRAM/SQ. METER, CYCLICAL (FOUR CYCLES, 375 MG/M2 DAY 1 VIA ROUTE IV EVERY 14 DAYS )
     Route: 042
     Dates: start: 2019
  33. RITUXIMAB [Suspect]
     Active Substance: RITUXIMAB
     Indication: Diffuse large B-cell lymphoma stage IV
     Dosage: 375 MILLIGRAM/SQ. METER, CYCLICAL (ONE COURSE OF CONSOLIDATION CHEMOTHERAPY, 375 MG/M2, DAY 4, ROUTE
     Route: 042
  34. VINCRISTINE [Suspect]
     Active Substance: VINCRISTINE
     Indication: Diffuse large B-cell lymphoma
     Dosage: 1.4 MILLIGRAM/SQ. METER, CYCLICAL (FOUR CYCLES, 1.4 MG/M2 DAY 1 VIA ROUTE IV EVERY 14 DAYS)
     Route: 042
     Dates: start: 2019
  35. VINCRISTINE [Suspect]
     Active Substance: VINCRISTINE
     Indication: Diffuse large B-cell lymphoma stage IV

REACTIONS (3)
  - RUNX1 gene mutation [Unknown]
  - Chromosomal deletion [Unknown]
  - Myelodysplastic syndrome [Recovered/Resolved]

NARRATIVE: CASE EVENT DATE: 20211201
